FAERS Safety Report 24905675 (Version 1)
Quarter: 2025Q1

REPORT INFORMATION
  Report Type: Spontaneous
  Country: US (occurrence: US)
  Receive Date: 20250130
  Receipt Date: 20250130
  Transmission Date: 20250408
  Serious: No
  Sender: HRA PHARMA
  Company Number: US-ORG100014127-2024000205

PATIENT
  Age: 11 Year
  Sex: Male

DRUGS (8)
  1. METYRAPONE [Suspect]
     Active Substance: METYRAPONE
     Indication: Cushing^s syndrome
     Dosage: 750MG TWICE DAILY
  2. METYRAPONE [Suspect]
     Active Substance: METYRAPONE
     Indication: Cushing^s syndrome
     Dosage: 1000MG TWICE DAILY
  3. KETOCONAZOLE [Concomitant]
     Active Substance: KETOCONAZOLE
     Indication: Cushing^s syndrome
  4. LANREOTIDE [Concomitant]
     Active Substance: LANREOTIDE
     Indication: Cushing^s syndrome
  5. SPIRONOLACTONE [Concomitant]
     Active Substance: SPIRONOLACTONE
     Indication: Cushing^s syndrome
  6. SUNITINIB [Concomitant]
     Active Substance: SUNITINIB
     Indication: Cushing^s syndrome
  7. CABERGOLINE [Concomitant]
     Active Substance: CABERGOLINE
     Indication: Cushing^s syndrome
  8. OSILODROSTAT [Concomitant]
     Active Substance: OSILODROSTAT
     Indication: Cushing^s syndrome

REACTIONS (6)
  - Hypoglycaemia [Unknown]
  - Decreased appetite [Unknown]
  - Diarrhoea [Unknown]
  - Fatigue [Unknown]
  - Blood pressure decreased [Unknown]
  - Off label use [Unknown]
